FAERS Safety Report 8922703 (Version 1)
Quarter: 2012Q4

REPORT INFORMATION
  Report Type: Spontaneous
  Country: US (occurrence: None)
  Receive Date: 20121115
  Receipt Date: 20121115
  Transmission Date: 20130627
  Serious: Yes (Hospitalization)
  Sender: FDA-Public Use
  Company Number: JPI-P-026124

PATIENT
  Age: 34 Year
  Sex: Female
  Weight: 61.24 kg

DRUGS (2)
  1. XYREM (500 MILLIGRAM/MILLILITERS, SOLUTION) (SODIUM OXYBATE) [Suspect]
     Route: 048
     Dates: start: 20120928
  2. XYREM (500 MILLIGRAM/MILLILITERS, SOLUTION) (SODIUM OXYBATE) [Suspect]
     Dosage: (3 gm, 2 in 1 D)
     Route: 048

REACTIONS (3)
  - Blood glucose decreased [None]
  - Dysuria [None]
  - Insomnia [None]
